FAERS Safety Report 7542069-1 (Version None)
Quarter: 2011Q2

REPORT INFORMATION
  Report Type: 
  Country: None (occurrence: None)
  Receive Date: 20110606
  Receipt Date: 20110520
  Transmission Date: 20111010
  Serious: Yes (Hospitalization)
  Sender: FDA-Public Use
  Company Number: 1000021393

PATIENT
  Age: 84 Year
  Sex: Female

DRUGS (12)
  1. MEMANTINE [Suspect]
     Indication: DEMENTIA ALZHEIMER'S TYPE
     Dosage: 2 MG (10 MG, 2 IN 1 D), ORAL
     Route: 048
     Dates: start: 20100201, end: 20100623
  2. CITALOPRAM HYDROBROMIDE [Suspect]
     Dosage: 40 MG (20 MG, 2 IN 1 D), ORAL 20 MG (20 MG, 1 IN 1 D), ORAL
     Route: 048
  3. VALIUM [Suspect]
     Dosage: 15 MG (5MG, 3 IN 1 D), ORAL 10 MG, ORAL
     Route: 048
  4. HUMALOG (INSULIN LISPRO) (INSULIN LISPRO) [Concomitant]
  5. THERALENE (ALIMEMAZINE TARTRATE) (DROPS) (ALIMEMAZINE TARTRATE) [Concomitant]
  6. HALDOL [Suspect]
     Dosage: 12 GTT (12 GTT, 1 IN 1 D) 10 GTT (10 GTT, 1 IN 1 D)
  7. LEVEMIR [Concomitant]
  8. LEVOTHYROX (LEVOTHYROXINE SODIUM) (TABLETS) (LEVOTHYROXINE SODIUM) [Concomitant]
  9. ARICEPT [Suspect]
     Indication: DEMENTIA ALZHEIMER'S TYPE
     Dosage: 10 MG (5 MG, 2 IN 1 D), ORAL
     Route: 048
     Dates: start: 20100201, end: 20100623
  10. MEPRONIZINE (MEPRONIZINE /00789201/) (MEPRONIZINE /00789201/) [Concomitant]
  11. ATARAX [Suspect]
     Dosage: 75 MG (25 MG, 3 IN 1 D), ORAL
     Route: 048
     Dates: start: 20100201, end: 20100623
  12. TARDYFERNON (TARDYFERON /01675201/) (TABLETS) (TARDYFERON /01675201/) [Concomitant]

REACTIONS (11)
  - DISTURBANCE IN ATTENTION [None]
  - BLOOD SODIUM DECREASED [None]
  - CONDITION AGGRAVATED [None]
  - FALL [None]
  - GENERAL PHYSICAL HEALTH DETERIORATION [None]
  - ABNORMAL BEHAVIOUR [None]
  - SOMNOLENCE [None]
  - AGITATION [None]
  - AUTONOMIC NEUROPATHY [None]
  - DECREASED APPETITE [None]
  - DEHYDRATION [None]
